FAERS Safety Report 13357546 (Version 11)
Quarter: 2018Q2

REPORT INFORMATION
  Report Type: Report from Study
  Country: CA (occurrence: CA)
  Receive Date: 20170322
  Receipt Date: 20180628
  Transmission Date: 20180711
  Serious: Yes (Disabling, Other)
  Sender: FDA-Public Use
  Company Number: CA-UCBSA-2017008888

PATIENT
  Age: 32 Year
  Sex: Female

DRUGS (2)
  1. KEFLEX [Concomitant]
     Active Substance: CEPHALEXIN
     Indication: PRODUCT USED FOR UNKNOWN INDICATION
     Dosage: UNK
     Dates: start: 20171103, end: 20171113
  2. CERTOLIZUMAB PEGOL RA [Suspect]
     Active Substance: CERTOLIZUMAB PEGOL
     Indication: RHEUMATOID ARTHRITIS
     Dosage: UNK

REACTIONS (14)
  - Fatigue [Not Recovered/Not Resolved]
  - Tooth infection [Unknown]
  - Urinary tract infection [Unknown]
  - Influenza [Not Recovered/Not Resolved]
  - Rheumatoid arthritis [Not Recovered/Not Resolved]
  - Bartholin^s cyst [Recovered/Resolved]
  - Fungal infection [Recovered/Resolved]
  - Fall [Unknown]
  - Dizziness [Unknown]
  - Rapid eye movements sleep abnormal [Not Recovered/Not Resolved]
  - Cough [Unknown]
  - Pyrexia [Unknown]
  - Vomiting [Unknown]
  - Drug ineffective [Unknown]

NARRATIVE: CASE EVENT DATE: 2017
